FAERS Safety Report 6749257-2 (Version None)
Quarter: 2010Q2

REPORT INFORMATION
  Report Type: 
  Country: None (occurrence: None)
  Receive Date: 20100601
  Receipt Date: 20100519
  Transmission Date: 20101027
  Serious: Yes (Other)
  Sender: FDA-Public Use
  Company Number: PHHY2009CA19259

PATIENT
  Sex: Female

DRUGS (1)
  1. SANDOSTATIN LAR [Suspect]
     Indication: ACROMEGALY
     Dosage: 30 MG, EVERY 4 WEEKS
     Route: 030
     Dates: start: 20041103

REACTIONS (12)
  - CONTUSION [None]
  - DIPLOPIA [None]
  - ENERGY INCREASED [None]
  - EYELID INFECTION [None]
  - FALL [None]
  - HAEMOGLOBIN DECREASED [None]
  - HEADACHE [None]
  - INSULIN-LIKE GROWTH FACTOR INCREASED [None]
  - MUSCULOSKELETAL STIFFNESS [None]
  - PAIN IN JAW [None]
  - THYROID DISORDER [None]
  - VISUAL IMPAIRMENT [None]
